FAERS Safety Report 16475203 (Version 1)
Quarter: 2019Q2

REPORT INFORMATION
  Report Type: Spontaneous
  Country: US (occurrence: US)
  Receive Date: 20190625
  Receipt Date: 20190625
  Transmission Date: 20190711
  Serious: No
  Sender: FDA-Public Use
  Company Number: US-SA-2019SA165179

PATIENT
  Sex: Male

DRUGS (1)
  1. DUPIXENT [Suspect]
     Active Substance: DUPILUMAB
     Indication: DERMATITIS ATOPIC
     Dosage: 300 MG, UNK
     Route: 058
     Dates: start: 201901

REACTIONS (4)
  - Erythema [Unknown]
  - Photosensitivity reaction [Unknown]
  - Dermatitis atopic [Unknown]
  - Pruritus [Unknown]
